FAERS Safety Report 5152178-2 (Version None)
Quarter: 2006Q4

REPORT INFORMATION
  Report Type: 
  Country: None (occurrence: None)
  Receive Date: 20061116
  Receipt Date: 20061027
  Transmission Date: 20070319
  Serious: Yes (Hospitalization)
  Sender: FDA-Public Use
  Company Number: JP-JPN-A200604567

PATIENT
  Age: 68 Year
  Sex: Male
  Weight: 55 kg

DRUGS (9)
  1. PAXIL [Suspect]
     Indication: DEPRESSION
     Dosage: 20MG PER DAY
     Route: 048
     Dates: start: 20061003, end: 20061016
  2. INDERAL [Suspect]
     Indication: HYPERTENSION
     Dosage: 10MG PER DAY
     Route: 048
     Dates: end: 20061012
  3. SYMMETREL [Suspect]
     Indication: TREMOR
     Route: 048
     Dates: start: 20061020
  4. ARICEPT [Concomitant]
     Indication: DEMENTIA
     Dosage: 5MG PER DAY
     Route: 048
  5. ALOSENN [Concomitant]
     Indication: CONSTIPATION
     Dosage: .5MG PER DAY
     Route: 048
  6. RENIVACE [Concomitant]
     Indication: HYPERTENSION
     Dosage: 2.5MG PER DAY
     Route: 048
     Dates: end: 20061010
  7. RENIVACE [Concomitant]
     Dosage: 5MG PER DAY
     Route: 048
     Dates: start: 20061011
  8. ASPIRIN [Concomitant]
     Indication: DEPRESSION
     Dosage: 30MG PER DAY
     Route: 048
     Dates: end: 20061003
  9. SEDIEL [Concomitant]
     Indication: DEPRESSION
     Dosage: 30MG PER DAY
     Route: 048
     Dates: end: 20061003

REACTIONS (5)
  - DYSSTASIA [None]
  - HYPERHIDROSIS [None]
  - MYOCLONUS [None]
  - SEROTONIN SYNDROME [None]
  - TREMOR [None]
